FAERS Safety Report 8485598 (Version 7)
Quarter: 2013Q4

REPORT INFORMATION
  Report Type: Report from Study
  Country: DE (occurrence: DE)
  Receive Date: 20120330
  Receipt Date: 20131125
  Transmission Date: 20140711
  Serious: Yes (Death, Hospitalization)
  Sender: FDA-Public Use
  Company Number: DE-BRISTOL-MYERS SQUIBB COMPANY-16481053

PATIENT
  Age: 80 Year
  Sex: Female
  Weight: 70 kg

DRUGS (7)
  1. IPILIMUMAB [Suspect]
     Indication: MALIGNANT MELANOMA
     Route: 042
     Dates: start: 20120209, end: 20120301
  2. VOMEX A [Concomitant]
     Route: 042
     Dates: start: 20120321, end: 20120321
  3. SODIUM CHLORIDE [Concomitant]
     Dosage: 1DF= 0.9%
  4. DEXAMETHASONE [Concomitant]
     Route: 048
  5. PANTOZOL [Concomitant]
     Route: 048
  6. TORASEMIDE [Concomitant]
     Route: 048
  7. HALOPERIDOL [Concomitant]
     Route: 048

REACTIONS (2)
  - Multi-organ failure [Fatal]
  - Nausea [Unknown]
